FAERS Safety Report 24733171 (Version 4)
Quarter: 2025Q1

REPORT INFORMATION
  Report Type: Spontaneous
  Country: US (occurrence: US)
  Receive Date: 20241213
  Receipt Date: 20250210
  Transmission Date: 20250409
  Serious: No
  Sender: SANOFI AVENTIS
  Company Number: US-SA-2024SA366715

PATIENT
  Age: 64 Year
  Sex: Female

DRUGS (2)
  1. DUPIXENT [Suspect]
     Active Substance: DUPILUMAB
     Indication: Nasal polyps
     Dosage: 300 MG, QOW
     Route: 058
     Dates: start: 20241104
  2. WIXELA INHUB [Concomitant]
     Active Substance: FLUTICASONE PROPIONATE\SALMETEROL XINAFOATE

REACTIONS (16)
  - Injection site warmth [Recovering/Resolving]
  - Nasal congestion [Not Recovered/Not Resolved]
  - Impaired quality of life [Unknown]
  - Chronic rhinosinusitis with nasal polyps [Not Recovered/Not Resolved]
  - Anosmia [Not Recovered/Not Resolved]
  - Gastrooesophageal reflux disease [Unknown]
  - Nasal polyps [Not Recovered/Not Resolved]
  - Dysphonia [Unknown]
  - Nasal turbinate hypertrophy [Unknown]
  - Rhinitis allergic [Unknown]
  - Nasal septum deviation [Unknown]
  - Asthma [Unknown]
  - Injection site erythema [Unknown]
  - Injection site pain [Unknown]
  - Injection site pruritus [Not Recovered/Not Resolved]
  - Condition aggravated [Not Recovered/Not Resolved]

NARRATIVE: CASE EVENT DATE: 20241204
